FAERS Safety Report 4909729-X (Version None)
Quarter: 2006Q1

REPORT INFORMATION
  Report Type: 
  Country: None (occurrence: None)
  Receive Date: 20060208
  Receipt Date: 20060126
  Transmission Date: 20060701
  Serious: Yes (Other)
  Sender: FDA-Public Use
  Company Number: 2006013908

PATIENT
  Age: 51 Year
  Sex: Male

DRUGS (4)
  1. BEXTRA [Suspect]
     Indication: ILL-DEFINED DISORDER
  2. CELEBREX [Suspect]
     Indication: ARTHRITIS
     Dosage: (2 IN 1 D),
     Dates: start: 20050101, end: 20050101
  3. CELEBREX [Suspect]
     Indication: JOINT SWELLING
     Dosage: (2 IN 1 D),
     Dates: start: 20050101, end: 20050101
  4. CELEBREX [Suspect]
     Indication: PAIN
     Dosage: (2 IN 1 D),
     Dates: start: 20050101, end: 20050101

REACTIONS (1)
  - DRUG INEFFECTIVE [None]
